FAERS Safety Report 6810650-0 (Version None)
Quarter: 2010Q2

REPORT INFORMATION
  Report Type: 
  Country: None (occurrence: None)
  Receive Date: 20100629
  Receipt Date: 20100629
  Transmission Date: 20101027
  Serious: Yes (Other)
  Sender: FDA-Public Use
  Company Number: None

PATIENT
  Sex: Male
  Weight: 70 kg

DRUGS (8)
  1. ERGOCALCIFEROL 50,000 UNITS 1 CAP PO X 1 ONLY [Suspect]
     Indication: VITAMIN D DEFICIENCY
     Dosage: 50,000 UNITS 1 CAP PO X1 ONLY
     Route: 048
     Dates: start: 20100615
  2. BUMETANIDE [Concomitant]
  3. ALDACTONE [Concomitant]
  4. COREG [Concomitant]
  5. COUMADIN [Concomitant]
  6. LIPITOR [Concomitant]
  7. ALENDONATE [Concomitant]
  8. PRILOSEC [Concomitant]

REACTIONS (4)
  - ASTHENIA [None]
  - DIZZINESS [None]
  - HEADACHE [None]
  - PALPITATIONS [None]
